FAERS Safety Report 18081091 (Version 4)
Quarter: 2020Q3

REPORT INFORMATION
  Report Type: Spontaneous
  Country: SE (occurrence: SE)
  Receive Date: 20200728
  Receipt Date: 20200910
  Transmission Date: 20201103
  Serious: Yes (Death, Other)
  Sender: FDA-Public Use
  Company Number: NVSC2020SE210156

PATIENT
  Sex: Female

DRUGS (9)
  1. STREPTOMYCIN [Suspect]
     Active Substance: STREPTOMYCIN SULFATE
     Indication: TUBERCULOSIS
     Dosage: UNK
     Route: 065
  2. STREPTOMYCIN [Suspect]
     Active Substance: STREPTOMYCIN SULFATE
     Indication: MENINGOENCEPHALITIS BACTERIAL
  3. ISONIAZID. [Interacting]
     Active Substance: ISONIAZID
     Indication: TUBERCULOSIS
     Dosage: UNK
     Route: 065
  4. ISONIAZID. [Interacting]
     Active Substance: ISONIAZID
     Indication: MENINGOENCEPHALITIS BACTERIAL
  5. RIFAMPICIN [Interacting]
     Active Substance: RIFAMPIN
     Indication: MENINGOENCEPHALITIS BACTERIAL
  6. RIFAMPICIN [Suspect]
     Active Substance: RIFAMPIN
     Indication: TUBERCULOSIS
     Dosage: UNK
     Route: 065
  7. ISOFLURANE. [Interacting]
     Active Substance: ISOFLURANE
     Indication: ANAESTHESIA
     Dosage: UNK
     Route: 065
  8. PYRAZINAMIDE. [Suspect]
     Active Substance: PYRAZINAMIDE
     Indication: TUBERCULOSIS
     Dosage: UNK
     Route: 065
  9. PYRAZINAMIDE. [Suspect]
     Active Substance: PYRAZINAMIDE
     Indication: TUBERCULOSIS

REACTIONS (7)
  - Abortion spontaneous [Unknown]
  - Hepatitis fulminant [Fatal]
  - Hepatic failure [Fatal]
  - Exposure during pregnancy [Unknown]
  - Jaundice [Fatal]
  - Drug-induced liver injury [Fatal]
  - Drug interaction [Fatal]
